FAERS Safety Report 25515762 (Version 1)
Quarter: 2025Q3

REPORT INFORMATION
  Report Type: Spontaneous
  Country: US (occurrence: US)
  Receive Date: 20250704
  Receipt Date: 20250704
  Transmission Date: 20251021
  Serious: No
  Sender: RADIUS PHARM
  Company Number: US-RADIUS HEALTH INC.-2025US000832

PATIENT
  Sex: Female

DRUGS (1)
  1. TYMLOS [Suspect]
     Active Substance: ABALOPARATIDE
     Indication: Osteoporosis postmenopausal
     Route: 058
     Dates: start: 20250126, end: 20250129

REACTIONS (10)
  - Dizziness [Recovering/Resolving]
  - Malaise [Not Recovered/Not Resolved]
  - Abdominal discomfort [Not Recovered/Not Resolved]
  - Nausea [Recovering/Resolving]
  - Headache [Recovered/Resolved]
  - Temporomandibular pain and dysfunction syndrome [Recovering/Resolving]
  - Vomiting [Recovering/Resolving]
  - Illness [Recovering/Resolving]
  - Condition aggravated [Recovering/Resolving]
  - Intentional dose omission [Recovering/Resolving]

NARRATIVE: CASE EVENT DATE: 20250126
